FAERS Safety Report 5748534-1 (Version None)
Quarter: 2008Q2

REPORT INFORMATION
  Report Type: 
  Country: None (occurrence: None)
  Receive Date: 20080520
  Receipt Date: 20080508
  Transmission Date: 20081010
  Serious: Yes (Hospitalization)
  Sender: FDA-Public Use
  Company Number: VNL_01030_2008

PATIENT
  Sex: Male
  Weight: 94.8018 kg

DRUGS (3)
  1. APOKYN [Suspect]
     Indication: DRUG USE FOR UNKNOWN INDICATION
     Dosage: (0.4 ML 5X/DAY [4 TIMES DURING THE DAY AND 1 TIME AT NIGHT] SUBCUTANEOUS), (0.2 ML SUBCUTANEOUS)
     Route: 058
     Dates: start: 20070701, end: 20080101
  2. APOKYN [Suspect]
     Indication: DRUG USE FOR UNKNOWN INDICATION
     Dosage: (0.4 ML 5X/DAY [4 TIMES DURING THE DAY AND 1 TIME AT NIGHT] SUBCUTANEOUS), (0.2 ML SUBCUTANEOUS)
     Route: 058
     Dates: start: 20080101
  3. PARKINSON'S DISEASE MEDICATIONS [Concomitant]

REACTIONS (15)
  - ACTIVITIES OF DAILY LIVING IMPAIRED [None]
  - ASTHENIA [None]
  - CONDITION AGGRAVATED [None]
  - DECREASED APPETITE [None]
  - DROOLING [None]
  - DYSKINESIA [None]
  - FALL [None]
  - FLUID INTAKE REDUCED [None]
  - HALLUCINATION [None]
  - INCONTINENCE [None]
  - LOBAR PNEUMONIA [None]
  - MALAISE [None]
  - SOMNOLENCE [None]
  - TREMOR [None]
  - URINARY TRACT INFECTION [None]
